FAERS Safety Report 20125893 (Version 1)
Quarter: 2021Q4

REPORT INFORMATION
  Report Type: Spontaneous
  Country: CN (occurrence: CN)
  Receive Date: 20211129
  Receipt Date: 20211129
  Transmission Date: 20220303
  Serious: Yes (Hospitalization)
  Sender: FDA-Public Use
  Company Number: CN-PFIZER INC-202101630283

PATIENT
  Age: 15 Year
  Sex: Male
  Weight: 51 kg

DRUGS (4)
  1. METHOTREXATE [Suspect]
     Active Substance: METHOTREXATE
     Indication: Bone sarcoma
     Dosage: 8 G, 1X/DAY
     Route: 041
     Dates: start: 20211009, end: 20211009
  2. METHOTREXATE [Suspect]
     Active Substance: METHOTREXATE
     Dosage: 7.4 G, 1X/DAY
     Route: 041
     Dates: start: 20211009, end: 20211009
  3. SODIUM CHLORIDE [Concomitant]
     Active Substance: SODIUM CHLORIDE
     Dosage: 300 ML
     Route: 041
     Dates: start: 20211009, end: 20211009
  4. SODIUM CHLORIDE [Concomitant]
     Active Substance: SODIUM CHLORIDE
     Dosage: 300 ML
     Route: 041
     Dates: start: 20211009, end: 20211009

REACTIONS (3)
  - Lymphangitis [Recovering/Resolving]
  - Erythema [Recovering/Resolving]
  - Peripheral swelling [Recovering/Resolving]

NARRATIVE: CASE EVENT DATE: 20211010
